FAERS Safety Report 20175294 (Version 1)
Quarter: 2021Q4

REPORT INFORMATION
  Report Type: Spontaneous
  Country: US (occurrence: None)
  Receive Date: 20211209
  Receipt Date: 20211209
  Transmission Date: 20220303
  Serious: Yes (Other)
  Sender: FDA-Public Use
  Company Number: None

PATIENT
  Age: 35 Year
  Sex: Male

DRUGS (1)
  1. SOTROVIMAB [Suspect]
     Active Substance: SOTROVIMAB
     Indication: COVID-19
     Route: 041

REACTIONS (4)
  - Infusion related reaction [None]
  - Syncope [None]
  - Atrial fibrillation [None]
  - Heart rate increased [None]

NARRATIVE: CASE EVENT DATE: 20211208
